FAERS Safety Report 6410464-X (Version None)
Quarter: 2009Q4

REPORT INFORMATION
  Report Type: 
  Country: None (occurrence: None)
  Receive Date: 20091020
  Receipt Date: 20091020
  Transmission Date: 20100525
  Serious: Yes (Life-Threatening, Hospitalization, Other)
  Sender: FDA-Public Use
  Company Number: None

PATIENT
  Age: 58 Year
  Sex: Female
  Weight: 100.6985 kg

DRUGS (1)
  1. ERGOCALICFEROL 50,000 USP DRISDOL [Suspect]
     Indication: VITAMIN D DEFICIENCY
     Dosage: 1CAPSULE EVERY THURSDAY
     Dates: start: 20091001, end: 20091007

REACTIONS (1)
  - CEREBROVASCULAR ACCIDENT [None]
